FAERS Safety Report 21400437 (Version 1)
Quarter: 2022Q4

REPORT INFORMATION
  Report Type: Spontaneous
  Country: DE (occurrence: DE)
  Receive Date: 20221003
  Receipt Date: 20221003
  Transmission Date: 20230113
  Serious: Yes (Hospitalization, Other)
  Sender: FDA-Public Use
  Company Number: DE-ADRED-08381-03

PATIENT
  Age: 66 Year
  Sex: Female
  Weight: 41 kg

DRUGS (5)
  1. ASPIRIN [Suspect]
     Active Substance: ASPIRIN
     Indication: Product used for unknown indication
     Dosage: 100 MILLIGRAM, 1-0-0-0
     Route: 065
  2. CLOPIDOGREL [Suspect]
     Active Substance: CLOPIDOGREL BISULFATE
     Indication: Product used for unknown indication
     Dosage: 75 MILLIGRAM, 1-0-0-0
     Route: 065
  3. FOLIC ACID [Concomitant]
     Active Substance: FOLIC ACID
     Indication: Product used for unknown indication
     Dosage: 0.4 MILLIGRAM, SCHEME
     Route: 065
  4. PANTOPRAZOLE SODIUM [Concomitant]
     Active Substance: PANTOPRAZOLE SODIUM
     Indication: Product used for unknown indication
     Dosage: 40 MILLIGRAM, 1-0-1-0
     Route: 065
  5. LEVOTHYROXINE SODIUM [Concomitant]
     Active Substance: LEVOTHYROXINE SODIUM
     Indication: Product used for unknown indication
     Dosage: 75 MICROGRAM, 1-0-0-0
     Route: 065

REACTIONS (11)
  - Gastrointestinal haemorrhage [Unknown]
  - Renal impairment [Unknown]
  - Cachexia [Unknown]
  - Systemic infection [Unknown]
  - Melaena [Unknown]
  - Haematochezia [Unknown]
  - General physical health deterioration [Unknown]
  - Abdominal pain [Unknown]
  - Anaemia [Unknown]
  - Condition aggravated [Unknown]
  - Pallor [Unknown]
